FAERS Safety Report 6290995-6 (Version None)
Quarter: 2009Q3

REPORT INFORMATION
  Report Type: 
  Country: None (occurrence: None)
  Receive Date: 20090730
  Receipt Date: 20090721
  Transmission Date: 20100115
  Serious: Yes (Other)
  Sender: FDA-Public Use
  Company Number: CA-PFIZER INC-2009239909

PATIENT
  Age: 72 Year

DRUGS (12)
  1. NORVASC [Suspect]
     Dosage: 10 MG, UNK
     Route: 048
     Dates: start: 20060801
  2. NORFLOXACIN [Suspect]
     Dosage: UNK
  3. ASPIRIN [Concomitant]
     Dosage: 81 MG, UNK
     Route: 048
  4. HYDROCHLOROTHIAZIDE [Concomitant]
     Dosage: 25 MG, UNK
     Route: 048
  5. LOSARTAN [Concomitant]
     Dosage: 100 MG, UNK
     Route: 048
  6. FENOFIBRATE [Concomitant]
     Dosage: 200 MG, UNK
     Route: 048
  7. PRAVASTATIN [Concomitant]
     Dosage: 40 MG, 1X/DAY, AT SUPPER
     Route: 048
  8. ASCORBIC ACID [Concomitant]
     Dosage: 1000 MG, UNK
  9. VITAMIN D [Concomitant]
     Dosage: 400 IU, UNK
  10. FOLIC ACID [Concomitant]
     Dosage: 1 MG, UNK
  11. SALMON OIL [Concomitant]
     Dosage: 1000 MG, UNK
  12. CALCIUM/MINERALS/VITAMIN D [Concomitant]
     Dosage: UNK

REACTIONS (4)
  - CARDIAC PACEMAKER INSERTION [None]
  - DIZZINESS [None]
  - DRUG INTERACTION [None]
  - PARAESTHESIA [None]
